FAERS Safety Report 21962811 (Version 4)
Quarter: 2024Q3

REPORT INFORMATION
  Report Type: Spontaneous
  Country: FR (occurrence: FR)
  Receive Date: 20230207
  Receipt Date: 20240823
  Transmission Date: 20241016
  Serious: Yes (Death, Hospitalization, Other)
  Sender: MYLAN
  Company Number: FR-GRUNENTHAL-2023-100196

PATIENT
  Age: 38 Year
  Sex: Male

DRUGS (3)
  1. FENTANYL [Suspect]
     Active Substance: FENTANYL\FENTANYL CITRATE
     Indication: Product used for unknown indication
     Dosage: UNK
     Route: 065
  2. OXYBATE [Suspect]
     Active Substance: OXYBATE
     Indication: Product used for unknown indication
     Dosage: UNK
     Route: 065
  3. METHAMPHETAMINE [Suspect]
     Active Substance: METHAMPHETAMINE
     Indication: Product used for unknown indication
     Dosage: UNK
     Route: 065

REACTIONS (5)
  - Death [Fatal]
  - Toxicity to various agents [Fatal]
  - Cardio-respiratory arrest [Unknown]
  - Overdose [Unknown]
  - Drug abuse [Unknown]

NARRATIVE: CASE EVENT DATE: 20210101
